FAERS Safety Report 14396909 (Version 1)
Quarter: 2018Q1

REPORT INFORMATION
  Report Type: Spontaneous
  Country: US (occurrence: US)
  Receive Date: 20180116
  Receipt Date: 20180116
  Transmission Date: 20180509
  Serious: No
  Sender: FDA-Public Use
  Company Number: US-ALLERGAN-1752486US

PATIENT
  Age: 21 Year
  Sex: Female

DRUGS (2)
  1. BOTOX [Suspect]
     Active Substance: ONABOTULINUMTOXINA
     Indication: NEUROGENIC BLADDER
     Dosage: 100 UNITS, SINGLE
     Route: 043
     Dates: start: 201706, end: 201706
  2. BOTOX [Suspect]
     Active Substance: ONABOTULINUMTOXINA
     Dosage: 200 UNITS, SINGLE
     Route: 030

REACTIONS (3)
  - Fatigue [Recovering/Resolving]
  - Drug ineffective [Unknown]
  - White blood cell count increased [Unknown]
